FAERS Safety Report 20884884 (Version 2)
Quarter: 2022Q2

REPORT INFORMATION
  Report Type: Other
  Country: US (occurrence: None)
  Receive Date: 20220527
  Receipt Date: 20220601
  Transmission Date: 20220720
  Serious: Yes (Death)
  Sender: FDA-Public Use
  Company Number: US-ROCHE-3096859

PATIENT
  Sex: Female
  Weight: 93 kg

DRUGS (1)
  1. OCREVUS [Suspect]
     Active Substance: OCRELIZUMAB
     Indication: Primary progressive multiple sclerosis
     Dosage: ONGOING: NO; DATE OF TREATMENT: 24/JAN/2022, 19/JUL/2021, 13/JAN/2021, 13/JUL/2020, 11/JUN/2019
     Route: 042
     Dates: start: 20190611

REACTIONS (2)
  - Adenocarcinoma pancreas [Fatal]
  - Metastases to central nervous system [Fatal]
